FAERS Safety Report 5066342-4 (Version None)
Quarter: 2006Q3

REPORT INFORMATION
  Report Type: 
  Country: None (occurrence: None)
  Receive Date: 20060728
  Receipt Date: 20060728
  Transmission Date: 20061208
  Serious: Yes (Death, Hospitalization)
  Sender: FDA-Public Use
  Company Number: None

PATIENT
  Sex: Male
  Weight: 75 kg

DRUGS (4)
  1. FLUOROURACIL [Suspect]
     Dosage: 3350 MG
     Route: 040
     Dates: start: 20060606
  2. LEUCOVORIN CALCIUM [Suspect]
     Dosage: 750 MG
     Dates: start: 20060606
  3. ELOXATIN [Suspect]
     Dosage: 95 MG
     Dates: start: 20060606
  4. LAXIS [Concomitant]

REACTIONS (26)
  - ABDOMINAL PAIN [None]
  - ACUTE PRERENAL FAILURE [None]
  - ARTERIOSCLEROSIS CORONARY ARTERY [None]
  - ATRIAL FIBRILLATION [None]
  - CANDIDIASIS [None]
  - CARDIAC ARREST [None]
  - DEHYDRATION [None]
  - DIARRHOEA [None]
  - FEBRILE NEUTROPENIA [None]
  - FUNGUS SPUTUM TEST POSITIVE [None]
  - HYPOTENSION [None]
  - ILEUS [None]
  - INFLAMMATORY BOWEL DISEASE [None]
  - INTESTINAL ISCHAEMIA [None]
  - METABOLIC ACIDOSIS [None]
  - MITRAL VALVE INCOMPETENCE [None]
  - NAUSEA [None]
  - PULMONARY HYPERTENSION [None]
  - RECTAL HAEMORRHAGE [None]
  - RENAL FAILURE [None]
  - RESPIRATORY FAILURE [None]
  - SEPSIS [None]
  - SEPTIC SHOCK [None]
  - THROMBOCYTOPENIA [None]
  - TRICUSPID VALVE INCOMPETENCE [None]
  - VOMITING [None]
